FAERS Safety Report 6417480-2 (Version None)
Quarter: 2009Q4

REPORT INFORMATION
  Report Type: 
  Country: None (occurrence: None)
  Receive Date: 20091026
  Receipt Date: 20091020
  Transmission Date: 20100525
  Serious: Yes (Death)
  Sender: FDA-Public Use
  Company Number: 2009JP006333

PATIENT
  Age: 49 Year
  Sex: Female

DRUGS (5)
  1. PROGRAF [Suspect]
     Indication: CORD BLOOD TRANSPLANT THERAPY
  2. RITUXAN [Concomitant]
  3. FLUDARABINE PHOSPHATE [Concomitant]
  4. MELPHALAN (MELPHALAN) [Concomitant]
  5. METHOTREXATE [Concomitant]

REACTIONS (3)
  - COMA SCALE ABNORMAL [None]
  - JC VIRUS TEST POSITIVE [None]
  - PROGRESSIVE MULTIFOCAL LEUKOENCEPHALOPATHY [None]
